FAERS Safety Report 14000150 (Version 1)
Quarter: 2017Q3

REPORT INFORMATION
  Report Type: Spontaneous
  Country: US (occurrence: US)
  Receive Date: 20170922
  Receipt Date: 20170922
  Transmission Date: 20171128
  Serious: No
  Sender: FDA-Public Use
  Company Number: US-BAYER-2017-181001

PATIENT
  Age: 71 Year
  Sex: Female
  Weight: 53 kg

DRUGS (5)
  1. MIRALAX [Suspect]
     Active Substance: POLYETHYLENE GLYCOL 3350
     Indication: COLONOSCOPY
     Dosage: 239 G, UNK
     Route: 048
     Dates: end: 2015
  2. LEVOTHYROXINE. [Concomitant]
     Active Substance: LEVOTHYROXINE
     Dosage: UNK
  3. VERAPAMIL [Concomitant]
     Active Substance: VERAPAMIL HYDROCHLORIDE
     Dosage: UNK
  4. DULCOLAX PICOSULFAT [Concomitant]
     Active Substance: SODIUM PICOSULFATE
     Dosage: UNK
  5. REGLAN [Concomitant]
     Active Substance: METOCLOPRAMIDE HYDROCHLORIDE
     Dosage: UNK

REACTIONS (6)
  - Inappropriate prescribing [Unknown]
  - Off label use [None]
  - Product use in unapproved indication [None]
  - Drug administration error [None]
  - Off label use [Unknown]
  - Product use in unapproved indication [Unknown]

NARRATIVE: CASE EVENT DATE: 2015
